FAERS Safety Report 24997573 (Version 3)
Quarter: 2025Q2

REPORT INFORMATION
  Report Type: Spontaneous
  Country: US (occurrence: US)
  Receive Date: 20250222
  Receipt Date: 20250402
  Transmission Date: 20250717
  Serious: No
  Sender: BRISTOL MYERS SQUIBB
  Company Number: US-BRISTOL-MYERS SQUIBB COMPANY-2025-026871

PATIENT
  Age: 73 Year
  Sex: Female
  Weight: 73.75 kg

DRUGS (13)
  1. REVLIMID [Suspect]
     Active Substance: LENALIDOMIDE
     Indication: Plasma cell myeloma
     Route: 048
     Dates: start: 20250213
  2. BUSPIRONE [Concomitant]
     Active Substance: BUSPIRONE HYDROCHLORIDE
     Indication: Product used for unknown indication
  3. ASPIRIN [Concomitant]
     Active Substance: ASPIRIN
     Indication: Product used for unknown indication
  4. IRBESARTAN [Concomitant]
     Active Substance: IRBESARTAN
     Indication: Blood pressure measurement
  5. ATORVASTATIN [Concomitant]
     Active Substance: ATORVASTATIN
     Indication: Product used for unknown indication
  6. SERTRALINE [Concomitant]
     Active Substance: SERTRALINE HYDROCHLORIDE
     Indication: Product used for unknown indication
  7. PANTOPRAZOLE [Concomitant]
     Active Substance: PANTOPRAZOLE
     Indication: Product used for unknown indication
  8. ACYCLOVIR [Concomitant]
     Active Substance: ACYCLOVIR
     Indication: Product used for unknown indication
  9. VELCADE [Concomitant]
     Active Substance: BORTEZOMIB
     Indication: Product used for unknown indication
  10. DARATUMUMAB [Concomitant]
     Active Substance: DARATUMUMAB
     Indication: Product used for unknown indication
  11. DEXAMETHASONE [Concomitant]
     Active Substance: DEXAMETHASONE
     Indication: Product used for unknown indication
  12. CITRULLINE [Concomitant]
     Active Substance: CITRULLINE
     Indication: Product used for unknown indication
  13. URSODIOL [Concomitant]
     Active Substance: URSODIOL
     Indication: Product used for unknown indication

REACTIONS (4)
  - Rash pruritic [Unknown]
  - Oral candidiasis [Unknown]
  - Off label use [Unknown]
  - Pruritus [Unknown]

NARRATIVE: CASE EVENT DATE: 20250201
